FAERS Safety Report 18441568 (Version 3)
Quarter: 2021Q1

REPORT INFORMATION
  Report Type: Spontaneous
  Country: US (occurrence: US)
  Receive Date: 20201029
  Receipt Date: 20210311
  Transmission Date: 20210419
  Serious: No
  Sender: FDA-Public Use
  Company Number: US-PFIZER INC-2020419554

PATIENT
  Age: 77 Year
  Sex: Female
  Weight: 54.88 kg

DRUGS (14)
  1. ZOMETA [Concomitant]
     Active Substance: ZOLEDRONIC ACID
     Dosage: UNK
  2. LUTEIN [Concomitant]
     Active Substance: LUTEIN
     Dosage: UNK
  3. POTASSIUM GLUCONATE [Concomitant]
     Active Substance: POTASSIUM GLUCONATE
     Dosage: UNK
  4. PROBIOTIC BLEND [Concomitant]
     Dosage: UNK
  5. STOOL SOFTENER (DOCUSATE) [Concomitant]
     Active Substance: DOCUSATE
     Dosage: UNK
  6. VITAMIN C [Concomitant]
     Active Substance: ASCORBIC ACID
     Dosage: UNK
  7. TYLENOL [Concomitant]
     Active Substance: ACETAMINOPHEN
     Dosage: UNK
  8. IBRANCE [Suspect]
     Active Substance: PALBOCICLIB
     Indication: BREAST CANCER FEMALE
     Dosage: 100 MG, CYCLIC (DAILY, DAYS 1?21 OF A 28 DAY CYCLE)
     Route: 048
     Dates: start: 20200901
  9. KRILL OIL [Concomitant]
     Active Substance: DIETARY SUPPLEMENT\KRILL OIL
     Dosage: UNK
  10. ASPIRIN [ACETYLSALICYLIC ACID] [Concomitant]
     Active Substance: ASPIRIN
     Dosage: UNK
  11. MELATONIN [Concomitant]
     Active Substance: MELATONIN
     Dosage: UNK
  12. COMBIVENT RESPIMAT [Concomitant]
     Active Substance: ALBUTEROL SULFATE\IPRATROPIUM BROMIDE
     Dosage: UNK
  13. MAGNESIUM [Concomitant]
     Active Substance: MAGNESIUM
     Dosage: UNK
  14. VITAMIN D3 [Concomitant]
     Active Substance: CHOLECALCIFEROL
     Dosage: UNK

REACTIONS (5)
  - Diarrhoea [Recovering/Resolving]
  - Hypersensitivity [Recovering/Resolving]
  - Nasopharyngitis [Recovering/Resolving]
  - Body temperature fluctuation [Recovering/Resolving]
  - Rhinorrhoea [Recovering/Resolving]
